FAERS Safety Report 9956317 (Version 1)
Quarter: 2014Q1

REPORT INFORMATION
  Report Type: Report from Study
  Country: US (occurrence: US)
  Receive Date: 20140304
  Receipt Date: 20140304
  Transmission Date: 20141002
  Serious: Yes (Other)
  Sender: FDA-Public Use
  Company Number: US-ABBVIE-13P-163-1089289-00

PATIENT
  Sex: Female
  Weight: 90.8 kg

DRUGS (1)
  1. HUMIRA [Suspect]
     Indication: RHEUMATOID ARTHRITIS
     Route: 058
     Dates: start: 2006, end: 2006

REACTIONS (3)
  - Knee arthroplasty [Recovered/Resolved]
  - Wound infection staphylococcal [Recovered/Resolved]
  - Drug ineffective [Unknown]
